FAERS Safety Report 7221446-2 (Version None)
Quarter: 2010Q4

REPORT INFORMATION
  Report Type: 
  Country: None (occurrence: None)
  Receive Date: 20101230
  Receipt Date: 20101112
  Transmission Date: 20110411
  Serious: No
  Sender: FDA-Public Use
  Company Number: 2010-01004

PATIENT
  Age: 60 Year
  Sex: Male
  Weight: 86.1834 kg

DRUGS (5)
  1. ZICAM COLD REMEDY ORAL MIST [Suspect]
     Dosage: Q 3 HOURS X 14 DAYS
     Dates: start: 20101028, end: 20101110
  2. CRESTOR [Concomitant]
  3. METOPROLOL [Concomitant]
  4. MULTIVITAMIN FOR MEN [Concomitant]
  5. ASPIRIN [Concomitant]

REACTIONS (3)
  - ANOSMIA [None]
  - DRUG INEFFECTIVE [None]
  - DYSGEUSIA [None]
